FAERS Safety Report 15419953 (Version 2)
Quarter: 2018Q4

REPORT INFORMATION
  Report Type: Spontaneous
  Country: US (occurrence: US)
  Receive Date: 20180924
  Receipt Date: 20181220
  Transmission Date: 20190204
  Serious: No
  Sender: FDA-Public Use
  Company Number: US-ADAMAS PHARMA, LLC-2018ADA01425

PATIENT
  Age: 70 Year
  Sex: Male

DRUGS (18)
  1. AMANTADINE. [Concomitant]
     Active Substance: AMANTADINE HYDROCHLORIDE
  2. MIDODRINE [Concomitant]
     Active Substance: MIDODRINE
  3. SOTALOL HCL [Concomitant]
     Active Substance: SOTALOL
  4. FLUDROCORT [Concomitant]
  5. ROPINIROLE. [Concomitant]
     Active Substance: ROPINIROLE
  6. GOCOVRI [Suspect]
     Active Substance: AMANTADINE
     Indication: DYSKINESIA
     Dosage: 137 MG, 1X/DAY AT BEDTIME
     Route: 048
     Dates: start: 20180604, end: 20180610
  7. PRADAXA [Concomitant]
     Active Substance: DABIGATRAN ETEXILATE MESYLATE
  8. GOCOVRI [Suspect]
     Active Substance: AMANTADINE
     Dosage: 137 MG, 1X/DAY AT BEDTIME
     Route: 048
     Dates: start: 20180621
  9. TYLENOL [Concomitant]
     Active Substance: ACETAMINOPHEN
  10. ENTACAPONE. [Concomitant]
     Active Substance: ENTACAPONE
  11. MELATONIN [Concomitant]
     Active Substance: MELATONIN
  12. CLONAZEPAM. [Concomitant]
     Active Substance: CLONAZEPAM
  13. LYRICA [Concomitant]
     Active Substance: PREGABALIN
  14. GOCOVRI [Suspect]
     Active Substance: AMANTADINE
     Dosage: 274 MG, 1X/DAY AT BEDTIME
     Route: 048
     Dates: start: 20180611, end: 20180620
  15. GOCOVRI [Suspect]
     Active Substance: AMANTADINE
     Dosage: 137 MG, 1X/DAY AT BEDTIME
     Route: 048
     Dates: start: 20180621
  16. CARBIDOPA/LEVODOPA/ENTACAPONE [Concomitant]
     Active Substance: CARBIDOPA\ENTACAPONE\LEVODOPA
  17. GABAPENTIN. [Concomitant]
     Active Substance: GABAPENTIN
  18. METOPROLOL SUCCINATE. [Concomitant]
     Active Substance: METOPROLOL SUCCINATE

REACTIONS (6)
  - Hallucination [Not Recovered/Not Resolved]
  - Somnambulism [Not Recovered/Not Resolved]
  - Abnormal dreams [Not Recovered/Not Resolved]
  - Peripheral swelling [Not Recovered/Not Resolved]
  - Sleep talking [Not Recovered/Not Resolved]
  - Sleep disorder [Not Recovered/Not Resolved]

NARRATIVE: CASE EVENT DATE: 2018
